FAERS Safety Report 16938730 (Version 1)
Quarter: 2019Q4

REPORT INFORMATION
  Report Type: Spontaneous
  Country: US (occurrence: US)
  Receive Date: 20190828
  Receipt Date: 20190828
  Transmission Date: 20200122
  Serious: No
  Sender: FDA-Public Use
  Company Number: None

PATIENT
  Age: 64 Year
  Sex: Male

DRUGS (1)
  1. TOBI PODHALER [Suspect]
     Active Substance: TOBRAMYCIN
     Dates: start: 201906, end: 201908

REACTIONS (8)
  - Kidney infection [None]
  - Headache [None]
  - Nausea [None]
  - Productive cough [None]
  - Cystic fibrosis [None]
  - Condition aggravated [None]
  - Diarrhoea [None]
  - Flushing [None]

NARRATIVE: CASE EVENT DATE: 20190821
